FAERS Safety Report 9796086 (Version 4)
Quarter: 2021Q4

REPORT INFORMATION
  Report Type: Report from Study
  Country: US (occurrence: US)
  Receive Date: 20140103
  Receipt Date: 20211124
  Transmission Date: 20220303
  Serious: Yes (Life-Threatening, Other)
  Sender: FDA-Public Use
  Company Number: US-SA-2014SA000385

PATIENT
  Age: 66 Year
  Sex: Male
  Weight: 98.6 kg

DRUGS (6)
  1. CLOFARABINE [Suspect]
     Active Substance: CLOFARABINE
     Indication: Acute myeloid leukaemia
     Dosage: 0.66 MG/KG
     Route: 042
     Dates: start: 20130222, end: 20130226
  2. CLOFARABINE [Suspect]
     Active Substance: CLOFARABINE
     Dosage: 0.42 MG/KG
     Route: 042
     Dates: start: 20130314, end: 20130318
  3. CLOFARABINE [Suspect]
     Active Substance: CLOFARABINE
     Dosage: 0.33 MG/KG
     Route: 042
     Dates: start: 20130603, end: 20130607
  4. BORTEZOMIB [Suspect]
     Active Substance: BORTEZOMIB
     Indication: Product used for unknown indication
     Dosage: UNK
     Route: 065
  5. LENALIDOMIDE [Suspect]
     Active Substance: LENALIDOMIDE
     Indication: Product used for unknown indication
     Dosage: UNK
     Route: 065
  6. DEXAMETHASONE [Concomitant]
     Active Substance: DEXAMETHASONE
     Dosage: UNK

REACTIONS (2)
  - Cardiac arrest [Unknown]
  - Myelodysplastic syndrome [Unknown]

NARRATIVE: CASE EVENT DATE: 20131028
